FAERS Safety Report 25337188 (Version 1)
Quarter: 2025Q2

REPORT INFORMATION
  Report Type: Spontaneous
  Country: BG (occurrence: BG)
  Receive Date: 20250520
  Receipt Date: 20250520
  Transmission Date: 20250717
  Serious: Yes (Hospitalization, Other)
  Sender: INSUD PHARMA
  Company Number: BG-INSUD PHARMA-2505BG03755

PATIENT

DRUGS (1)
  1. LEVOTHYROXINE SODIUM [Suspect]
     Active Substance: LEVOTHYROXINE SODIUM
     Indication: Autoimmune thyroiditis
     Route: 065

REACTIONS (5)
  - Diffuse large B-cell lymphoma [Unknown]
  - Small intestinal obstruction [Unknown]
  - Constipation [Unknown]
  - Abdominal pain [Unknown]
  - Nausea [Unknown]
